FAERS Safety Report 14319173 (Version 2)
Quarter: 2018Q1

REPORT INFORMATION
  Report Type: Report from Study
  Country: US (occurrence: US)
  Receive Date: 20171222
  Receipt Date: 20180103
  Transmission Date: 20180509
  Serious: Yes (Hospitalization, Other)
  Sender: FDA-Public Use
  Company Number: US-BRISTOL-MYERS SQUIBB COMPANY-BMS-2017-108008

PATIENT
  Sex: Male

DRUGS (3)
  1. IPILIMUMAB [Suspect]
     Active Substance: IPILIMUMAB
     Indication: ACUTE MYELOID LEUKAEMIA
     Dosage: 1 MG/KG, UNK
     Route: 042
     Dates: start: 20170928
  2. 5-AZACYTIDINE [Suspect]
     Active Substance: AZACITIDINE
     Indication: ACUTE MYELOID LEUKAEMIA
     Dosage: 75 MG/M2, UNK
     Route: 042
     Dates: start: 20170928
  3. NIVOLUMAB [Suspect]
     Active Substance: NIVOLUMAB
     Indication: ACUTE MYELOID LEUKAEMIA
     Dosage: 3 MG/KG, UNK
     Route: 042
     Dates: start: 20170928

REACTIONS (1)
  - Febrile neutropenia [Recovering/Resolving]

NARRATIVE: CASE EVENT DATE: 20171127
